FAERS Safety Report 7398780-9 (Version None)
Quarter: 2011Q2

REPORT INFORMATION
  Report Type: 
  Country: None (occurrence: None)
  Receive Date: 20110401
  Receipt Date: 20110401
  Transmission Date: 20111010
  Serious: Yes (Hospitalization)
  Sender: FDA-Public Use
  Company Number: None

PATIENT
  Age: 84 Year
  Sex: Male
  Weight: 72 kg

DRUGS (2)
  1. WARFARIN [Suspect]
     Indication: ATRIAL FIBRILLATION
     Dosage: 2 MG EVERY DAY PO
     Route: 048
     Dates: start: 20100303
  2. ENOXAPARIN [Suspect]
     Indication: ATRIAL FIBRILLATION
     Dosage: 70 MG BID SQ
     Route: 058
     Dates: start: 20100227, end: 20100308

REACTIONS (9)
  - HAEMATOCHEZIA [None]
  - INTERNATIONAL NORMALISED RATIO DECREASED [None]
  - COLON ADENOMA [None]
  - MOUTH HAEMORRHAGE [None]
  - INJECTION SITE HAEMATOMA [None]
  - DIZZINESS [None]
  - POST PROCEDURAL HAEMORRHAGE [None]
  - HAEMATURIA [None]
  - HAEMATOCRIT DECREASED [None]
